FAERS Safety Report 4830703-6 (Version None)
Quarter: 2005Q4

REPORT INFORMATION
  Report Type: 
  Country: None (occurrence: None)
  Receive Date: 20051115
  Receipt Date: 20051101
  Transmission Date: 20060501
  Serious: Yes (Other)
  Sender: FDA-Public Use
  Company Number: 219068

PATIENT
  Age: 64 Year
  Sex: Male
  Weight: 59 kg

DRUGS (11)
  1. RITUXAN [Suspect]
     Indication: LYMPHOMA
     Dosage: 600 MG, INTRAVENOUS
     Route: 042
     Dates: start: 20040707, end: 20041206
  2. PARAPLATIN [Suspect]
     Indication: LYMPHOMA
     Dates: start: 20040709, end: 20040712
  3. CYTARABINE [Suspect]
     Indication: LYMPHOMA
     Dates: start: 20040709, end: 20040712
  4. TOPOTECAN (TOPOTECAN HYDROCHLORIDE) [Suspect]
     Indication: LYMPHOMA
     Dates: start: 20040709, end: 20040712
  5. DECADRON [Suspect]
     Indication: LYMPHOMA
     Dates: start: 20040709, end: 20040712
  6. VEPESID [Suspect]
     Indication: LYMPHOMA
     Dates: start: 20040927, end: 20041002
  7. ONCOVIN [Suspect]
     Indication: LYMPHOMA
     Dates: start: 20040927, end: 20041002
  8. THERARUBICIN (PIRARUBICIN) [Suspect]
     Indication: LYMPHOMA
     Dates: start: 20040927, end: 20041002
  9. PREDISOLONE [Suspect]
     Indication: LYMPHOMA
     Dates: start: 20040927, end: 20041002
  10. PYRINAZIN (JAPAN) (ACETAMINOPHEN) [Concomitant]
  11. RESTAMIN (CHLORPHENIRAMINE MALEATE) [Concomitant]

REACTIONS (3)
  - NEUTROPENIA [None]
  - PLATELET COUNT DECREASED [None]
  - WHITE BLOOD CELL COUNT DECREASED [None]
